FAERS Safety Report 6694895-9 (Version None)
Quarter: 2010Q2

REPORT INFORMATION
  Report Type: 
  Country: None (occurrence: None)
  Receive Date: 20100423
  Receipt Date: 20100414
  Transmission Date: 20101027
  Serious: Yes (Other)
  Sender: FDA-Public Use
  Company Number: US-JNJFOC-20100210785

PATIENT
  Sex: Male
  Weight: 89.81 kg

DRUGS (19)
  1. TYLENOL [Suspect]
  2. TYLENOL [Suspect]
     Indication: DRUG USE FOR UNKNOWN INDICATION
  3. ASPIRIN [Concomitant]
  4. MULTI-VITAMINS [Concomitant]
  5. FISH OIL [Concomitant]
  6. FOLIC ACID [Concomitant]
  7. SPIRIVA [Concomitant]
     Route: 055
  8. XALATAN [Concomitant]
     Dosage: 1 DROP IN BOTH EYES
  9. ASTELIN [Concomitant]
     Route: 045
  10. AVAPRO [Concomitant]
     Route: 048
  11. DILTIAZEM HCL [Concomitant]
  12. FLAXSEED OIL [Concomitant]
  13. LASIX [Concomitant]
     Route: 048
  14. GLIPIZIDE [Concomitant]
     Route: 048
  15. METFORMIN [Concomitant]
     Route: 048
  16. PRAVASTATIN SODIUM [Concomitant]
  17. PRAVASTATIN SODIUM [Concomitant]
  18. DETROL LA [Concomitant]
  19. VERAMYST NOS [Concomitant]
     Dosage: 1-2 SPRAYS IN EACH NOSTRIL AT BEDTIME
     Route: 045

REACTIONS (5)
  - GASTROENTERITIS [None]
  - NAUSEA [None]
  - PRODUCT QUALITY ISSUE [None]
  - VOMITING [None]
  - WEIGHT DECREASED [None]
